FAERS Safety Report 4628508-4 (Version None)
Quarter: 2005Q2

REPORT INFORMATION
  Report Type: 
  Country: None (occurrence: None)
  Receive Date: 20050404
  Receipt Date: 20050401
  Transmission Date: 20051028
  Serious: Yes (Death)
  Sender: FDA-Public Use
  Company Number: NLWYE156328OCT04

PATIENT
  Age: 37 Year
  Sex: Male

DRUGS (5)
  1. GEMTUZUMAB OZOGAMICIN (GEMTUZUMAB OZOGAMICIN, INJECTION) [Suspect]
     Indication: CHRONIC MYELOMONOCYTIC LEUKAEMIA
     Dosage: 12.4 MG 1X PER 1 DAY
     Dates: start: 20040930, end: 20040930
  2. CYTARABINE [Suspect]
     Indication: CHRONIC MYELOMONOCYTIC LEUKAEMIA
     Dosage: TOTAL CUMULATIVE DOSE OF 2500 MG
     Dates: start: 20040924, end: 20041004
  3. IDARUBICIN (IDARUBICIN, , 0) [Suspect]
     Indication: CHRONIC MYELOMONOCYTIC LEUKAEMIA
     Dosage: TOTAL CUMULATIVE DOSE OF 90 MG
     Dates: start: 20040924, end: 20040928
  4. ALLOPURINOL [Concomitant]
  5. ATENOLOL [Concomitant]

REACTIONS (9)
  - CAPILLARY LEAK SYNDROME [None]
  - CONDITION AGGRAVATED [None]
  - DYSPNOEA [None]
  - FLUID RETENTION [None]
  - GENERAL PHYSICAL HEALTH DETERIORATION [None]
  - HYPOALBUMINAEMIA [None]
  - INFECTION [None]
  - LUNG INFILTRATION [None]
  - PLEURAL EFFUSION [None]
